FAERS Safety Report 9861763 (Version 18)
Quarter: 2016Q3

REPORT INFORMATION
  Report Type: Spontaneous
  Country: CA (occurrence: CA)
  Receive Date: 20140203
  Receipt Date: 20160922
  Transmission Date: 20161109
  Serious: Yes (Hospitalization, Other)
  Sender: FDA-Public Use
  Company Number: CA-ROCHE-1342492

PATIENT
  Age: 55 Year
  Sex: Female

DRUGS (11)
  1. VENTOLIN [Concomitant]
     Active Substance: ALBUTEROL SULFATE
  2. ALVESCO [Concomitant]
     Active Substance: CICLESONIDE
  3. PREDNISONE. [Concomitant]
     Active Substance: PREDNISONE
  4. LYRICA [Concomitant]
     Active Substance: PREGABALIN
     Route: 065
  5. XOLAIR [Suspect]
     Active Substance: OMALIZUMAB
     Indication: ASTHMA
     Dosage: 375 MG, BIW
     Route: 058
     Dates: start: 20120418, end: 20150324
  6. ADVAIR HFA [Concomitant]
     Active Substance: FLUTICASONE PROPIONATE\SALMETEROL XINAFOATE
  7. SPIRIVA [Concomitant]
     Active Substance: TIOTROPIUM BROMIDE MONOHYDRATE
  8. ELAVIL [Concomitant]
     Active Substance: AMITRIPTYLINE HYDROCHLORIDE
  9. MORPHINE [Concomitant]
     Active Substance: MORPHINE
     Route: 065
  10. SINGULAIR [Concomitant]
     Active Substance: MONTELUKAST SODIUM
  11. FENTANYL. [Concomitant]
     Active Substance: FENTANYL
     Dosage: PATCH
     Route: 065

REACTIONS (32)
  - Thoracic vertebral fracture [Not Recovered/Not Resolved]
  - Thrombosis [Unknown]
  - Lumbar vertebral fracture [Not Recovered/Not Resolved]
  - Diverticulitis [Unknown]
  - Somnolence [Unknown]
  - Nasopharyngitis [Recovered/Resolved]
  - Abdominal discomfort [Unknown]
  - Feeling abnormal [Unknown]
  - Tooth fracture [Unknown]
  - Animal scratch [Unknown]
  - Wound [Unknown]
  - Hypokinesia [Unknown]
  - Injury [Unknown]
  - Abdominal hernia [Unknown]
  - Asthma [Unknown]
  - Fracture [Unknown]
  - Fractured sacrum [Not Recovered/Not Resolved]
  - Fatigue [Unknown]
  - Weight decreased [Unknown]
  - Asthenia [Unknown]
  - Spinal fracture [Unknown]
  - Oropharyngeal pain [Unknown]
  - Deformity [Unknown]
  - Spinal column stenosis [Unknown]
  - Peripheral swelling [Not Recovered/Not Resolved]
  - Abdominal pain upper [Unknown]
  - Drug hypersensitivity [Unknown]
  - Foot fracture [Not Recovered/Not Resolved]
  - Pneumonia [Unknown]
  - Mobility decreased [Unknown]
  - Fall [Unknown]
  - Pyrexia [Unknown]

NARRATIVE: CASE EVENT DATE: 20120420
